FAERS Safety Report 22220685 (Version 1)
Quarter: 2023Q2

REPORT INFORMATION
  Report Type: Spontaneous
  Country: BR (occurrence: BR)
  Receive Date: 20230417
  Receipt Date: 20230417
  Transmission Date: 20230722
  Serious: Yes (Hospitalization, Other)
  Sender: FDA-Public Use
  Company Number: BR-STRIDES ARCOLAB LIMITED-2023SP005506

PATIENT
  Age: 36 Year
  Sex: Male

DRUGS (8)
  1. PREDNISOLONE [Suspect]
     Active Substance: PREDNISOLONE
     Indication: Pemphigus
     Dosage: 40 MILLIGRAM/DAY
     Route: 065
     Dates: start: 202009
  2. PREDNISOLONE [Suspect]
     Active Substance: PREDNISOLONE
     Dosage: UNK (MONOTHERAPY)
     Route: 065
     Dates: start: 2021
  3. PREDNISOLONE [Suspect]
     Active Substance: PREDNISOLONE
     Dosage: UNK (MONOTHERAPY)
     Route: 065
     Dates: start: 20211025
  4. AZATHIOPRINE [Suspect]
     Active Substance: AZATHIOPRINE
     Indication: Pemphigus
     Dosage: 100 MILLIGRAM/DAY
     Route: 065
     Dates: start: 202009, end: 202012
  5. DOXYCYCLINE [Suspect]
     Active Substance: DOXYCYCLINE
     Indication: Pemphigus
     Dosage: 200 MILLIGRAM/DAY
     Route: 065
     Dates: start: 202009
  6. MYCOPHENOLATE MOFETIL [Suspect]
     Active Substance: MYCOPHENOLATE MOFETIL
     Indication: Pemphigus
     Dosage: 3 GRAM/DAY
     Route: 065
     Dates: start: 202012
  7. RITUXIMAB [Suspect]
     Active Substance: RITUXIMAB
     Indication: Pemphigus
     Dosage: 1 GRAM (TWO INFUSIONS OF 1 G EACH ADMINISTERED ON 18 JAN 2021 AND 05 FEB 2021, RESPECTIVELY.)
     Route: 065
     Dates: start: 20210118
  8. RITUXIMAB [Suspect]
     Active Substance: RITUXIMAB
     Dosage: 1 GRAM (TWO INFUSIONS OF 1 G EACH ADMINISTERED ON 18 JAN 2021 AND 05 FEB 2021, RESPECTIVELY.)
     Route: 065
     Dates: start: 20210205

REACTIONS (5)
  - Respiratory failure [Recovered/Resolved]
  - Skin infection [Unknown]
  - COVID-19 [Recovered/Resolved]
  - Drug ineffective [Unknown]
  - Off label use [Unknown]

NARRATIVE: CASE EVENT DATE: 20200101
